FAERS Safety Report 8212571-8 (Version None)
Quarter: 2012Q1

REPORT INFORMATION
  Report Type: 
  Country: None (occurrence: None)
  Receive Date: 20120315
  Receipt Date: 20120301
  Transmission Date: 20120608
  Serious: Yes (Other)
  Sender: FDA-Public Use
  Company Number: FR-WATSON-2012-00231

PATIENT
  Sex: Male

DRUGS (7)
  1. ACETAMINOPHEN [Concomitant]
     Indication: PAIN
     Dosage: 3 G, DAILY
     Route: 048
  2. METFORMIN HCL [Concomitant]
     Indication: TYPE 2 DIABETES MELLITUS
     Dosage: 3 G, DAILY
     Route: 048
  3. SOLUPRED                           /00016201/ [Concomitant]
     Indication: ANTIINFLAMMATORY THERAPY
     Dosage: 40 MG, DAILY
  4. OXYCONTIN [Concomitant]
     Indication: PRODUCT USED FOR UNKNOWN INDICATION
     Dosage: 50 MG, DAILY
     Route: 048
  5. CAPTOPRIL [Concomitant]
     Indication: HYPERTENSION
     Dosage: 1 DF, DAILY
     Route: 048
  6. VALPROATE SODIUM [Suspect]
     Indication: EPILEPSY
     Dosage: 3 DF, DAILY
     Route: 048
     Dates: start: 20111219, end: 20120102
  7. VALPROATE SODIUM [Suspect]
     Dosage: 4 DF, DAILY
     Route: 048
     Dates: start: 20120102, end: 20120106

REACTIONS (1)
  - CONVULSION [None]
